FAERS Safety Report 7406062-1 (Version None)
Quarter: 2011Q2

REPORT INFORMATION
  Report Type: 
  Country: None (occurrence: None)
  Receive Date: 20110411
  Receipt Date: 20110401
  Transmission Date: 20111010
  Serious: Yes (Disabling)
  Sender: FDA-Public Use
  Company Number: B0710231A

PATIENT
  Sex: Female

DRUGS (6)
  1. DEPAKENE [Concomitant]
     Indication: EPILEPSY
     Dosage: 500MG THREE TIMES PER DAY
     Route: 048
  2. KEPPRA [Concomitant]
     Indication: EPILEPSY
     Dosage: 500MG TWICE PER DAY
     Route: 048
  3. HYDROCORTISONE [Concomitant]
     Dosage: 10MG TWICE PER DAY
     Route: 048
  4. DUPHALAC [Concomitant]
     Dosage: 1UNIT TWICE PER DAY
     Route: 048
  5. ZOPHREN [Suspect]
     Route: 048
     Dates: start: 20101227, end: 20110102
  6. VIDAZA [Suspect]
     Dosage: 75MGK CYCLIC
     Route: 042
     Dates: start: 20101227, end: 20110102

REACTIONS (3)
  - PSYCHOMOTOR SKILLS IMPAIRED [None]
  - COGNITIVE DISORDER [None]
  - EPILEPSY [None]
